FAERS Safety Report 5372214-8 (Version None)
Quarter: 2007Q2

REPORT INFORMATION
  Report Type: 
  Country: None (occurrence: None)
  Receive Date: 20070627
  Receipt Date: 20070622
  Transmission Date: 20071010
  Serious: Yes (Hospitalization)
  Sender: FDA-Public Use
  Company Number: B0476732A

PATIENT
  Age: 74 Year
  Sex: Male

DRUGS (3)
  1. PAROXETINE HCL [Suspect]
     Indication: ANXIETY DISORDER
     Dosage: 20MG PER DAY
     Route: 048
  2. TILUR [Suspect]
     Route: 048
     Dates: end: 20061106
  3. PROTON PUMP INHIBITOR [Concomitant]
     Route: 065

REACTIONS (10)
  - ABDOMINAL PAIN [None]
  - ANAEMIA [None]
  - CONSTIPATION [None]
  - GASTRITIS EROSIVE [None]
  - GASTROINTESTINAL HAEMORRHAGE [None]
  - HYPERTENSION [None]
  - HYPOCHROMIC ANAEMIA [None]
  - IRRITABLE BOWEL SYNDROME [None]
  - OEDEMA PERIPHERAL [None]
  - SERUM FERRITIN DECREASED [None]
